FAERS Safety Report 24737625 (Version 1)
Quarter: 2024Q4

REPORT INFORMATION
  Report Type: Spontaneous
  Country: GB (occurrence: GB)
  Receive Date: 20241216
  Receipt Date: 20241216
  Transmission Date: 20250115
  Serious: Yes (Hospitalization, Other)
  Sender: TEVA
  Company Number: None

PATIENT
  Age: 84 Year
  Sex: Male

DRUGS (18)
  1. GLIMEPIRIDE [Suspect]
     Active Substance: GLIMEPIRIDE
     Indication: Product used for unknown indication
     Dosage: EVERY MORNING
     Route: 065
  2. METFORMIN [Suspect]
     Active Substance: METFORMIN HYDROCHLORIDE
     Indication: Product used for unknown indication
     Route: 065
  3. ATORVASTATIN [Concomitant]
     Active Substance: ATORVASTATIN
     Indication: Product used for unknown indication
     Dosage: EVERY NIGHT
  4. GLYCERIN [Concomitant]
     Active Substance: GLYCERIN
     Indication: Product used for unknown indication
     Dosage: ONE TO BE INSERTED AS DIRECTED
  5. SERTRALINE [Concomitant]
     Active Substance: SERTRALINE HYDROCHLORIDE
     Indication: Product used for unknown indication
     Dosage: ONE TO BE TAKEN EACH DAY 28 TABLET - PT STATES NEVER HEARD OF IT, NOT TAKING - CONFIRMED WITH SON...
  6. ALENDRONIC ACID [Concomitant]
     Active Substance: ALENDRONIC ACID
     Indication: Product used for unknown indication
     Dosage: ONCE A WEEK ON THURSDAYS, A A H PHARMACEUTICALS LTD
  7. LERCANIDIPINE [Suspect]
     Active Substance: LERCANIDIPINE
     Indication: Product used for unknown indication
     Dosage: TEATIME, PATIENT STATES HE REMOVES FROM B^PACK AS GP TOLD HIM TO NOT TAKE IT ~7-10 DAYS AGO - RES...
     Route: 065
  8. IRBESARTAN [Suspect]
     Active Substance: IRBESARTAN
     Indication: Product used for unknown indication
     Dosage: EVERY MORNING
     Route: 065
  9. OXYCODONE [Concomitant]
     Active Substance: OXYCODONE
     Indication: Pain
     Dosage: 2.5 ML TO BE TAKEN EVERY 6 HOURS WHEN REQUIRED FOR PAIN, 250 ML - ONLY NEEDS COUPLE TIMES A WEEK....
     Route: 048
  10. CALCIUM\CHOLECALCIFEROL [Concomitant]
     Active Substance: CALCIUM\CHOLECALCIFEROL
     Indication: Product used for unknown indication
     Dosage: DE PHARMACEUTICALS
  11. FERROUS FUMARATE [Concomitant]
     Active Substance: FERROUS FUMARATE
     Indication: Product used for unknown indication
     Dosage: A A H PHARMACEUTICALS LTD
  12. POLYETHYLENE GLYCOL 3350\POTASSIUM CHLORIDE\SODIUM BICARBONATE\SODIUM [Concomitant]
     Active Substance: POLYETHYLENE GLYCOL 3350\POTASSIUM CHLORIDE\SODIUM BICARBONATE\SODIUM CHLORIDE
     Indication: Constipation
     Dosage: TAKE ONE TWICE A DAY FOR CONSTIPATION - DOESN^T NEED CURRENTLY BUT WAS USING PRE-ADMISSION, SACHE...
     Route: 048
  13. GABAPENTIN [Concomitant]
     Active Substance: GABAPENTIN
     Indication: Product used for unknown indication
  14. LANSOPRAZOLE [Concomitant]
     Active Substance: LANSOPRAZOLE
     Indication: Product used for unknown indication
  15. COCODAMOL [Concomitant]
     Active Substance: ACETAMINOPHEN\CODEINE PHOSPHATE
     Indication: Product used for unknown indication
     Dosage: TIME INTERVAL: AS NECESSARY: 2 FOUR TIMES A DAY (DO NOT USE PARACETAMOL WHILE ON CO-CODAMOL) 100 ...
  16. FUROSEMIDE [Suspect]
     Active Substance: FUROSEMIDE
     Indication: Product used for unknown indication
     Dosage: EVERY MORNING
     Route: 065
  17. POTASSIUM BICARBONATE\SODIUM ALGINATE [Concomitant]
     Active Substance: POTASSIUM BICARBONATE\SODIUM ALGINATE
     Indication: Product used for unknown indication
     Dosage: 5-10 MLS UPTO FOUR TIMES A DAY- AS NEEDED RARELY NEEDS, FORUM HEALTH PRODUCTS LTD
     Route: 048
  18. EDOXABAN [Concomitant]
     Active Substance: EDOXABAN
     Indication: Product used for unknown indication
     Dosage: EVERY MORNING, REDUCED DUE TO AKI + HELD DUE TO HAEMORRHAGE

REACTIONS (1)
  - Acute kidney injury [Recovered/Resolved]
